FAERS Safety Report 8130298-8 (Version None)
Quarter: 2012Q1

REPORT INFORMATION
  Report Type: 
  Country: None (occurrence: None)
  Receive Date: 20120210
  Receipt Date: 20120207
  Transmission Date: 20120608
  Serious: Yes (Other)
  Sender: FDA-Public Use
  Company Number: PHHY2011US52115

PATIENT
  Sex: Male

DRUGS (1)
  1. EXJADE [Suspect]
     Indication: HAEMOCHROMATOSIS
     Dosage: 1000 MG, QD
     Route: 048
     Dates: start: 20110606

REACTIONS (3)
  - THROMBOSIS [None]
  - DIARRHOEA [None]
  - OCULAR DISCOMFORT [None]
